FAERS Safety Report 8684154 (Version 2)
Quarter: 2012Q4

REPORT INFORMATION
  Report Type: 
  Country: FR (occurrence: FR)
  Receive Date: 20120726
  Receipt Date: 20121026
  Transmission Date: 20130627
  Serious: Yes (Hospitalization)
  Sender: FDA-Public Use
  Company Number: FR-PFIZER INC-2012174388

PATIENT
  Age: 63 Year
  Sex: Male

DRUGS (12)
  1. LYRICA [Suspect]
     Dosage: 100 mg, 2x/day
     Route: 048
  2. ALIMTA [Suspect]
     Indication: LUNG ADENOCARCINOMA
     Dosage: 900 mg, cyclic
     Route: 042
     Dates: start: 20120305, end: 20120515
  3. CISPLATIN [Suspect]
     Indication: LUNG ADENOCARCINOMA
     Dosage: 140 mg, cyclic
     Route: 042
     Dates: start: 20120305, end: 20120515
  4. ZOMETA [Suspect]
     Dosage: UNK
     Route: 042
     Dates: start: 20120515, end: 20120515
  5. OXYCONTIN [Suspect]
     Dosage: 40 mg in the morning and 50 mg in the evening
     Route: 048
  6. EMEND [Suspect]
     Dosage: 125 mg, cyclic
     Route: 048
     Dates: start: 20120305, end: 20120515
  7. ONDANSETRON [Suspect]
     Dosage: 8 mg, cyclic
     Route: 042
     Dates: start: 20120305, end: 20120515
  8. METHYLPREDNISOLONE [Suspect]
     Dosage: 120 mg, cyclic
     Route: 042
     Dates: start: 20120305, end: 20120515
  9. DEXAMETHASONE [Suspect]
     Dosage: 4 mg, 2x/day
     Route: 048
     Dates: start: 20120304, end: 20120516
  10. SPECIAFOLDINE [Suspect]
     Dosage: 0.4 mg, 1x/day
     Route: 048
     Dates: start: 201203
  11. VITAMIN B12 [Concomitant]
     Dosage: 1000 ug, every 3 cycles
     Route: 030
  12. OXYCONORM [Concomitant]
     Dosage: 5 mg, as needed

REACTIONS (2)
  - Haemolytic anaemia [Not Recovered/Not Resolved]
  - Dyspnoea [Not Recovered/Not Resolved]
